FAERS Safety Report 7241291-1 (Version None)
Quarter: 2011Q1

REPORT INFORMATION
  Report Type: 
  Country: None (occurrence: None)
  Receive Date: 20110124
  Receipt Date: 20110113
  Transmission Date: 20110831
  Serious: Yes (Other)
  Sender: FDA-Public Use
  Company Number: B0693995A

PATIENT
  Sex: Male

DRUGS (3)
  1. EPIVIR [Suspect]
     Indication: HIV INFECTION
     Route: 048
  2. RETROVIR [Suspect]
     Indication: HIV INFECTION
     Route: 048
  3. STOCRIN [Suspect]
     Indication: HIV INFECTION
     Route: 048

REACTIONS (6)
  - HYPERTRIGLYCERIDAEMIA [None]
  - HEPATIC STEATOSIS [None]
  - THIRST [None]
  - HYPERURICAEMIA [None]
  - DIABETES MELLITUS [None]
  - POLYDIPSIA [None]
